FAERS Safety Report 24081442 (Version 1)
Quarter: 2024Q3

REPORT INFORMATION
  Report Type: Report from Study
  Country: EG (occurrence: EG)
  Receive Date: 20240712
  Receipt Date: 20240712
  Transmission Date: 20241017
  Serious: Yes (Hospitalization)
  Sender: ROCHE
  Company Number: EG-ROCHE-10000018157

PATIENT
  Age: 24 Year
  Sex: Female

DRUGS (1)
  1. OCREVUS [Suspect]
     Active Substance: OCRELIZUMAB
     Indication: Multiple sclerosis
     Route: 042
     Dates: start: 20211112

REACTIONS (1)
  - Multiple sclerosis [Recovering/Resolving]

NARRATIVE: CASE EVENT DATE: 20240515
